FAERS Safety Report 7545259-7 (Version None)
Quarter: 2011Q2

REPORT INFORMATION
  Report Type: 
  Country: None (occurrence: None)
  Receive Date: 20110607
  Receipt Date: 20110523
  Transmission Date: 20111010
  Serious: Yes (Hospitalization, Other)
  Sender: FDA-Public Use
  Company Number: AUR-APL-2011-01872

PATIENT
  Age: 75 Year
  Sex: Female

DRUGS (2)
  1. TRIMETHOPRIM + SULFAMETHOXAZOLE [Suspect]
  2. METFORMIN HCL [Suspect]
     Dosage: 1000MG

REACTIONS (5)
  - DELIRIUM [None]
  - HYPOGLYCAEMIA [None]
  - OSTEOMYELITIS [None]
  - DECREASED APPETITE [None]
  - CONVULSION [None]
